FAERS Safety Report 4432463-X (Version None)
Quarter: 2004Q3

REPORT INFORMATION
  Report Type: 
  Country: None (occurrence: None)
  Receive Date: 20040820
  Receipt Date: 20040806
  Transmission Date: 20050211
  Serious: Yes (Life-Threatening, Hospitalization)
  Sender: FDA-Public Use
  Company Number: 04P-009-0269835-00

PATIENT
  Age: 41 Year
  Sex: Male
  Weight: 60 kg

DRUGS (6)
  1. ISOPTIN SR [Suspect]
     Indication: SUICIDE ATTEMPT
     Dosage: 4800-6400 MILLIGRAMS, PER ORAL
     Route: 048
  2. DICLOFENAC [Concomitant]
  3. THIAMINE NITRATE [Concomitant]
  4. CYANOCOBALAMIN [Concomitant]
  5. TIMOLOL MALEATE [Concomitant]
  6. PYRIDOXINE HYDROCHLORIDE [Concomitant]

REACTIONS (16)
  - ATRIOVENTRICULAR BLOCK [None]
  - ATRIOVENTRICULAR BLOCK FIRST DEGREE [None]
  - BLOOD PRESSURE IMMEASURABLE [None]
  - BLOOD PRESSURE SYSTOLIC DECREASED [None]
  - BODY TEMPERATURE DECREASED [None]
  - DEVICE INEFFECTIVE [None]
  - DRUG INEFFECTIVE [None]
  - DRUG TOXICITY [None]
  - ELECTROMECHANICAL DISSOCIATION [None]
  - INCOHERENT [None]
  - OVERDOSE [None]
  - OXYGEN SATURATION DECREASED [None]
  - PULSE PRESSURE DECREASED [None]
  - PUPILLARY REFLEX IMPAIRED [None]
  - SINUS BRADYCARDIA [None]
  - SUICIDE ATTEMPT [None]
